FAERS Safety Report 14305435 (Version 1)
Quarter: 2017Q4

REPORT INFORMATION
  Report Type: Spontaneous
  Country: FR (occurrence: FR)
  Receive Date: 20171219
  Receipt Date: 20171219
  Transmission Date: 20180321
  Serious: Yes (Other)
  Sender: FDA-Public Use
  Company Number: FR-OTSUKA-16672982

PATIENT
  Sex: Female

DRUGS (1)
  1. ABILIFY [Suspect]
     Active Substance: ARIPIPRAZOLE
     Indication: BIPOLAR DISORDER
     Dosage: INCREASED THE DOSAGE TO 30 MG AND DECREASED TO 15 MG DAILY-14MAY212.
     Route: 065

REACTIONS (2)
  - Diarrhoea [Recovered/Resolved]
  - Mania [Unknown]
